FAERS Safety Report 9568012 (Version 2)
Quarter: 2013Q4

REPORT INFORMATION
  Report Type: Spontaneous
  Country: US (occurrence: US)
  Receive Date: 20130930
  Receipt Date: 20131003
  Transmission Date: 20140711
  Serious: Yes (Other)
  Sender: FDA-Public Use
  Company Number: US-AMGEN-USASP2013056580

PATIENT
  Age: 64 Year
  Sex: Female
  Weight: 54.42 kg

DRUGS (6)
  1. ENBREL [Suspect]
     Indication: PRODUCT USED FOR UNKNOWN INDICATION
     Dosage: 50 MG, 2 TIMES/WK
     Route: 058
  2. METHOTREXATE [Concomitant]
     Dosage: 2.5 MG, UNK
     Route: 065
  3. FOLIC ACID [Concomitant]
     Dosage: UNK
  4. VITAMIN D                          /00107901/ [Concomitant]
     Dosage: 400 UNIT,CHW
     Route: 065
  5. VITAMIN E                          /00110501/ [Concomitant]
     Dosage: 200 UNIT, UNK
  6. BIOTIN [Concomitant]
     Dosage: 5 MG, UNK
     Route: 065

REACTIONS (2)
  - Diverticulitis [Recovered/Resolved]
  - Cystitis [Recovered/Resolved]
